FAERS Safety Report 7304505-5 (Version None)
Quarter: 2011Q1

REPORT INFORMATION
  Report Type: 
  Country: None (occurrence: None)
  Receive Date: 20110221
  Receipt Date: 20110217
  Transmission Date: 20110831
  Serious: Yes (Death, Hospitalization, Other)
  Sender: FDA-Public Use
  Company Number: JP-SANOFI-AVENTIS-2010SA051547

PATIENT
  Age: 58 Year
  Sex: Female

DRUGS (10)
  1. AVASTIN [Suspect]
     Indication: COLON CANCER METASTATIC
     Route: 041
     Dates: start: 20081001, end: 20081001
  2. ELPLAT [Suspect]
     Route: 041
     Dates: start: 20100618, end: 20100618
  3. FLUOROURACIL [Suspect]
     Route: 041
     Dates: start: 20100618, end: 20100618
  4. CALCIUM LEVOFOLINATE [Suspect]
     Indication: COLON CANCER METASTATIC
     Route: 041
     Dates: start: 20081001, end: 20081001
  5. FLUOROURACIL [Suspect]
     Route: 040
     Dates: start: 20100618, end: 20100618
  6. CALCIUM LEVOFOLINATE [Suspect]
     Route: 041
     Dates: start: 20100618, end: 20100618
  7. AVASTIN [Suspect]
     Route: 041
     Dates: start: 20100618, end: 20100618
  8. ELPLAT [Suspect]
     Indication: COLON CANCER METASTATIC
     Route: 041
     Dates: start: 20081001, end: 20081001
  9. FLUOROURACIL [Suspect]
     Indication: COLON CANCER METASTATIC
     Route: 040
     Dates: start: 20081001, end: 20081001
  10. FLUOROURACIL [Suspect]
     Route: 041
     Dates: start: 20081001, end: 20081001

REACTIONS (11)
  - RESPIRATORY FAILURE [None]
  - PERITONITIS [None]
  - MALIGNANT PLEURAL EFFUSION [None]
  - WOUND DEHISCENCE [None]
  - ABDOMINAL PAIN [None]
  - SHORT-BOWEL SYNDROME [None]
  - GASTRIC ULCER [None]
  - VOMITING [None]
  - ABDOMINAL DISTENSION [None]
  - GASTROINTESTINAL PERFORATION [None]
  - HYPERGLYCAEMIA [None]
